FAERS Safety Report 8319647-5 (Version None)
Quarter: 2012Q2

REPORT INFORMATION
  Report Type: 
  Country: None (occurrence: None)
  Receive Date: 20120427
  Receipt Date: 20120426
  Transmission Date: 20120825
  Serious: Yes (Life-Threatening, Hospitalization, Other)
  Sender: FDA-Public Use
  Company Number: PHHY2012DE006604

PATIENT
  Sex: Male
  Weight: 87 kg

DRUGS (12)
  1. EXFORGE HCT [Suspect]
     Dosage: (160MG+5MG+12.5 MG)
     Route: 048
     Dates: start: 20080814, end: 20081218
  2. RASILEZ [Suspect]
     Dosage: 300 MG PER DAY
     Route: 048
     Dates: start: 20081218, end: 20110728
  3. AMLODIPINE [Concomitant]
     Dosage: 5 MG/DAY
     Dates: start: 20080516, end: 20100817
  4. XIPAMIDE [Concomitant]
     Dosage: 10 MG/DAY
     Dates: start: 20100305, end: 20100817
  5. EXFORGE HCT [Suspect]
     Dosage: (160MG+10MG+25MG)
     Route: 048
     Dates: start: 20081218, end: 20110707
  6. SIMVASTATIN [Concomitant]
     Indication: HYPERLIPIDAEMIA
     Dosage: 10 MG PER DAY
     Route: 048
     Dates: start: 20100202
  7. ASPIRIN [Concomitant]
     Indication: PLATELET AGGREGATION INHIBITION
     Dosage: 100 MG PER DAY
     Route: 048
     Dates: start: 20000530
  8. ACE INHIBITOR NOS [Concomitant]
  9. BETA BLOCKING AGENTS [Concomitant]
  10. ALLOPURINOL [Concomitant]
     Indication: HYPERURICAEMIA
     Dosage: 100 MG PER DAY
     Route: 048
     Dates: start: 20000530
  11. STATINS [Concomitant]
  12. RASILEZ [Suspect]
     Indication: HYPERTENSION
     Route: 048
     Dates: start: 20080908, end: 20081218

REACTIONS (8)
  - BLOOD CREATININE INCREASED [None]
  - RENAL FAILURE [None]
  - BLOOD PRESSURE DECREASED [None]
  - TACHYCARDIA [None]
  - COLON CANCER [None]
  - BLOOD TRIGLYCERIDES INCREASED [None]
  - RECTAL CANCER [None]
  - HAEMATOCHEZIA [None]
